FAERS Safety Report 14892645 (Version 1)
Quarter: 2018Q2

REPORT INFORMATION
  Report Type: Spontaneous
  Country: US (occurrence: US)
  Receive Date: 20180514
  Receipt Date: 20180514
  Transmission Date: 20180711
  Serious: No
  Sender: FDA-Public Use
  Company Number: US-GLAXOSMITHKLINE-US2018079581

PATIENT
  Sex: Female

DRUGS (1)
  1. TARGET NTS 14MG TRANSDERMAL PATCH [Suspect]
     Active Substance: NICOTINE
     Indication: PRODUCT USED FOR UNKNOWN INDICATION
     Dosage: 14 MG, UNK
     Dates: start: 201804, end: 20180504

REACTIONS (6)
  - Drug hypersensitivity [Unknown]
  - Wrong technique in product usage process [Unknown]
  - Application site erythema [Unknown]
  - Skin burning sensation [Unknown]
  - Application site dryness [Unknown]
  - Application site pruritus [Unknown]

NARRATIVE: CASE EVENT DATE: 201804
